FAERS Safety Report 5513720-2 (Version None)
Quarter: 2007Q4

REPORT INFORMATION
  Report Type: 
  Country: None (occurrence: None)
  Receive Date: 20071109
  Receipt Date: 20071109
  Transmission Date: 20080405
  Serious: Yes (Other)
  Sender: FDA-Public Use
  Company Number: None

PATIENT
  Sex: Male
  Weight: 90.7194 kg

DRUGS (1)
  1. LORAZEPAM [Suspect]
     Indication: ANXIETY
     Dosage: 1MG 3 TIMES PER DAY PO
     Route: 048
     Dates: start: 20070503, end: 20071101

REACTIONS (1)
  - DRUG INEFFECTIVE [None]
